FAERS Safety Report 26051671 (Version 1)
Quarter: 2025Q4

REPORT INFORMATION
  Report Type: Report from Study
  Country: US (occurrence: US)
  Receive Date: 20251117
  Receipt Date: 20251117
  Transmission Date: 20260118
  Serious: Yes (Hospitalization)
  Sender: ABBVIE
  Company Number: US-ABBVIE-6547600

PATIENT
  Age: 29 Year
  Sex: Male

DRUGS (1)
  1. VENCLEXTA [Suspect]
     Active Substance: VENETOCLAX
     Indication: Chronic myeloid leukaemia
     Dosage: VENCLEXTA 200 MILLIGRAMS (100 MG TABLETS X2) ONCE DAILY FOR 7 DAYS EVERY 28 DAYS.
     Route: 048
     Dates: start: 20250415, end: 202509

REACTIONS (1)
  - Bone marrow transplant [Unknown]

NARRATIVE: CASE EVENT DATE: 20250101
